FAERS Safety Report 21193597 (Version 1)
Quarter: 2022Q3

REPORT INFORMATION
  Report Type: Report from Study
  Country: ZA (occurrence: ZA)
  Receive Date: 20220810
  Receipt Date: 20220810
  Transmission Date: 20221027
  Serious: Yes (Other)
  Sender: FDA-Public Use
  Company Number: ZA-BAYER-2022A108115

PATIENT
  Sex: Female

DRUGS (1)
  1. EYLEA [Suspect]
     Active Substance: AFLIBERCEPT
     Indication: Age-related macular degeneration
     Dosage: 1 VIAL LEFT EYE , SOLUTION FOR INJECTION
     Dates: start: 20210112

REACTIONS (2)
  - Tachyphylaxis [Not Recovered/Not Resolved]
  - Subretinal fluid [Not Recovered/Not Resolved]
